FAERS Safety Report 6412890-1 (Version None)
Quarter: 2009Q4

REPORT INFORMATION
  Report Type: 
  Country: None (occurrence: None)
  Receive Date: 20091023
  Receipt Date: 20091019
  Transmission Date: 20100525
  Serious: Yes (Death)
  Sender: FDA-Public Use
  Company Number: PHHY2009FR23923

PATIENT
  Sex: Female

DRUGS (19)
  1. NEORAL [Suspect]
     Dosage: MATERNAL DOSE: 100 MG BID THEN 50 MG BID THEN 25 MG BID
     Route: 064
  2. IMUREL [Suspect]
     Dosage: MATERNAL DOSE: 75 MG BID THEN 50 MG BID THEN 25 MG QD
     Route: 064
  3. RENAGEL [Suspect]
     Dosage: MATERNAL DOSE: 800 MG TID
     Route: 064
  4. KAYEXALATE [Suspect]
     Dosage: MATERNAL DOSE: 1 DF QD THEN 2 DF DAILY
     Route: 064
  5. MUCOMYST [Suspect]
     Dosage: MATERNAL DOSE: 200 MG BID
     Route: 064
  6. PIVALONE [Suspect]
     Dosage: MATERNAL DOSE: 2 DROPS BID
     Route: 064
  7. RHINOFLUIMUCIL [Suspect]
     Dosage: MATERNAL DOSE: 2 DF QD
     Route: 064
  8. ATARAX [Suspect]
     Dosage: MATERNAL DOSE: 25 MG QD
     Route: 064
  9. ORELOX [Suspect]
     Dosage: MATERNAL DOSE: 100 MG BID
     Route: 064
  10. ISOTRETINOIN [Suspect]
     Dosage: MATERNAL DOSE: 1 DF BID
     Route: 064
  11. ERYTHROMYCINE [Suspect]
     Dosage: MATERNAL DOSE: 1 DF BID
     Route: 064
  12. RUBOZINC [Suspect]
     Dosage: MATERNAL DOSE: 15 MG QD
     Route: 064
  13. AMLODIPINE BESYLATE [Suspect]
     Dosage: MATERNAL DOSE: 5 MG QD THEN 10 MG QD
     Route: 064
  14. LASILIX [Suspect]
     Dosage: MATERNAL DOSE: 500 MG BID
     Route: 064
  15. SPECIAFOLDINE [Suspect]
     Dosage: MATERNAL DOSE: 5 MG BID
     Route: 064
  16. UN-ALFA [Suspect]
     Dosage: MATERNAL DOSE: 0.5 MICROG QD
     Route: 064
  17. ESOMEPRAZOLE MAGNESIUM [Suspect]
     Dosage: MATERNAL DOSE: 40 MG QD THEN 20 MG QD
     Route: 064
  18. ARANESP [Suspect]
  19. VENOFER [Suspect]

REACTIONS (2)
  - DRUG EXPOSURE DURING PREGNANCY [None]
  - STILLBIRTH [None]
